FAERS Safety Report 10954190 (Version 1)
Quarter: 2015Q1

REPORT INFORMATION
  Report Type: Spontaneous
  Country: FI (occurrence: FI)
  Receive Date: 20150325
  Receipt Date: 20150325
  Transmission Date: 20150721
  Serious: Yes (Other)
  Sender: FDA-Public Use
  Company Number: FI-PFIZER INC-2015103397

PATIENT
  Age: 69 Year
  Sex: Female

DRUGS (1)
  1. CHAMPIX [Suspect]
     Active Substance: VARENICLINE TARTRATE
     Indication: SMOKING CESSATION THERAPY
     Dosage: UNK
     Dates: start: 20150131, end: 2015

REACTIONS (11)
  - Tongue discolouration [Unknown]
  - Decreased interest [Unknown]
  - Peripheral embolism [Unknown]
  - Lip blister [Unknown]
  - Urinary tract infection [Unknown]
  - Fatigue [Unknown]
  - Sluggishness [Unknown]
  - Feeling cold [Unknown]
  - Gingival discolouration [Unknown]
  - Feeling abnormal [Unknown]
  - Irritability [Unknown]

NARRATIVE: CASE EVENT DATE: 2015
